FAERS Safety Report 7128899-9 (Version None)
Quarter: 2010Q4

REPORT INFORMATION
  Report Type: 
  Country: None (occurrence: None)
  Receive Date: 20101130
  Receipt Date: 20101129
  Transmission Date: 20110411
  Serious: Yes (Hospitalization)
  Sender: FDA-Public Use
  Company Number: A0883087A

PATIENT
  Age: 52 Year
  Sex: Female

DRUGS (2)
  1. ADVAIR DISKUS 100/50 [Suspect]
     Indication: ASTHMA
     Route: 055
  2. XANAX [Concomitant]
     Route: 048

REACTIONS (3)
  - DRUG ADMINISTRATION ERROR [None]
  - RESPIRATORY DISORDER [None]
  - TACHYCARDIA [None]
